FAERS Safety Report 9009433 (Version 1)
Quarter: 2013Q1

REPORT INFORMATION
  Report Type: Spontaneous
  Country: US (occurrence: US)
  Receive Date: 20130110
  Receipt Date: 20130110
  Transmission Date: 20140127
  Serious: No
  Sender: FDA-Public Use
  Company Number: US-TARO-2012P1040812

PATIENT
  Age: 86 Year
  Sex: Male

DRUGS (12)
  1. CLOBETASOL PROPIONATE [Suspect]
     Indication: DRY SKIN
     Route: 061
     Dates: start: 201201
  2. DIPHENHYDRAMINE [Concomitant]
  3. OMEPRAZOLE [Concomitant]
  4. HYDROCHLOROTHIAZIDE [Concomitant]
  5. SIMVASTATIN [Concomitant]
  6. ATENOLOL [Concomitant]
  7. METAMUCIL [Concomitant]
  8. VITAMIN B12 [Concomitant]
  9. VITAMIN D3 [Concomitant]
  10. VITAMIN E [Concomitant]
  11. VITAMIN C [Concomitant]
  12. MULTIVITAMIN [Concomitant]

REACTIONS (1)
  - Drug ineffective [Not Recovered/Not Resolved]
